FAERS Safety Report 18879546 (Version 1)
Quarter: 2021Q1

REPORT INFORMATION
  Report Type: Spontaneous
  Country: US (occurrence: US)
  Receive Date: 20210211
  Receipt Date: 20210211
  Transmission Date: 20210420
  Serious: Yes (Other)
  Sender: FDA-Public Use
  Company Number: None

PATIENT
  Age: 54 Year
  Sex: Female

DRUGS (6)
  1. KADCYLA [Suspect]
     Active Substance: ADO-TRASTUZUMAB EMTANSINE
     Indication: BREAST CANCER
     Dosage: ?          OTHER FREQUENCY:EVERY 3 WEEKS;?
     Route: 042
  2. BENZONATATE 100MG [Concomitant]
     Active Substance: BENZONATATE
     Dates: start: 20201110
  3. DIPHENHYDRAMINE 50MG/ML [Concomitant]
     Active Substance: DIPHENHYDRAMINE
     Dates: start: 20201207
  4. DEXAMETHASONE 10MG/ML [Concomitant]
     Active Substance: DEXAMETHASONE SODIUM PHOSPHATE
     Dates: start: 20201207
  5. EXEMESTANE 25MG [Concomitant]
     Active Substance: EXEMESTANE
     Dates: start: 20201230
  6. GRANISETRON 1MG/ML [Concomitant]
     Dates: start: 20210113

REACTIONS (1)
  - Ejection fraction decreased [None]
